FAERS Safety Report 15165766 (Version 1)
Quarter: 2018Q3

REPORT INFORMATION
  Report Type: Spontaneous
  Country: US (occurrence: US)
  Receive Date: 20180719
  Receipt Date: 20180719
  Transmission Date: 20181010
  Serious: Yes (Other)
  Sender: FDA-Public Use
  Company Number: US-SA-2018SA159292

PATIENT
  Sex: Male

DRUGS (1)
  1. DULCOLAX (BISACODYL) [Suspect]
     Active Substance: BISACODYL

REACTIONS (5)
  - Visual impairment [Unknown]
  - Drug ineffective [Unknown]
  - Product appearance confusion [Unknown]
  - Surgery [Unknown]
  - Glaucoma [Unknown]
